FAERS Safety Report 5958517-4 (Version None)
Quarter: 2008Q4

REPORT INFORMATION
  Report Type: 
  Country: None (occurrence: None)
  Receive Date: 20081119
  Receipt Date: 20081110
  Transmission Date: 20090506
  Serious: No
  Sender: FDA-Public Use
  Company Number: CA-PFIZER INC-2008017671

PATIENT
  Sex: Female
  Weight: 50.2 kg

DRUGS (2)
  1. PREGABALIN [Suspect]
     Indication: CONVULSION
     Dosage: TEXT:150-255MG
     Route: 048
     Dates: start: 19990901
  2. DILANTIN [Concomitant]

REACTIONS (1)
  - NO ADVERSE EVENT [None]
